FAERS Safety Report 11072958 (Version 2)
Quarter: 2015Q3

REPORT INFORMATION
  Report Type: Report from Study
  Country: US (occurrence: US)
  Receive Date: 20150428
  Receipt Date: 20150715
  Transmission Date: 20151125
  Serious: Yes (Other)
  Sender: FDA-Public Use
  Company Number: US-SA-2015SA031767

PATIENT
  Age: 60 Year
  Sex: Female

DRUGS (2)
  1. AUBAGIO [Suspect]
     Active Substance: TERIFLUNOMIDE
     Indication: MULTIPLE SCLEROSIS
     Route: 048
     Dates: start: 2015
  2. AUBAGIO [Suspect]
     Active Substance: TERIFLUNOMIDE
     Indication: MULTIPLE SCLEROSIS
     Route: 048
     Dates: start: 20150227, end: 20150315

REACTIONS (11)
  - Back injury [Unknown]
  - Hypokinesia [Unknown]
  - Fall [Unknown]
  - Head injury [Unknown]
  - Pain in extremity [Recovering/Resolving]
  - Rotator cuff syndrome [Unknown]
  - Walking aid user [Unknown]
  - Nausea [Recovered/Resolved]
  - Drug ineffective [Unknown]
  - Muscular weakness [Unknown]
  - Dizziness [Not Recovered/Not Resolved]

NARRATIVE: CASE EVENT DATE: 2015
